FAERS Safety Report 4682859-6 (Version None)
Quarter: 2005Q2

REPORT INFORMATION
  Report Type: 
  Country: None (occurrence: None)
  Receive Date: 20050606
  Receipt Date: 20050513
  Transmission Date: 20051028
  Serious: Yes (Other)
  Sender: FDA-Public Use
  Company Number: DE-BRISTOL-MYERS SQUIBB COMPANY-12967832

PATIENT
  Age: 63 Year
  Sex: Female

DRUGS (6)
  1. PACLITAXEL [Suspect]
     Indication: BREAST CANCER
     Route: 042
     Dates: start: 20050120, end: 20050120
  2. CYCLOPHOSPHAMIDE [Suspect]
     Indication: BREAST CANCER
     Route: 042
     Dates: start: 20041118
  3. EPIRUBICIN [Suspect]
     Indication: BREAST CANCER
     Route: 042
     Dates: start: 20041118
  4. XELODA [Suspect]
     Indication: BREAST CANCER
     Route: 048
     Dates: start: 20050113, end: 20050113
  5. KEVATRIL [Concomitant]
     Route: 048
     Dates: start: 20041202, end: 20050315
  6. VITAFERRO [Concomitant]
     Dates: start: 20041118, end: 20050315

REACTIONS (1)
  - NEUTROPHIL COUNT DECREASED [None]
